FAERS Safety Report 6807795-8 (Version None)
Quarter: 2010Q2

REPORT INFORMATION
  Report Type: 
  Country: None (occurrence: None)
  Receive Date: 20100629
  Receipt Date: 20081127
  Transmission Date: 20101027
  Serious: No
  Sender: FDA-Public Use
  Company Number: US-PFIZER INC-2008101040

PATIENT
  Sex: Female
  Weight: 79.5 kg

DRUGS (4)
  1. XANAX [Suspect]
     Indication: SLEEP DISORDER
  2. DETROL LA [Suspect]
     Indication: HYPERTONIC BLADDER
     Dates: start: 20081125
  3. RANITIDINE [Concomitant]
  4. CELEBREX [Concomitant]
     Indication: ARTHRITIS

REACTIONS (5)
  - DRUG INTOLERANCE [None]
  - INSOMNIA [None]
  - INTERVERTEBRAL DISC PROTRUSION [None]
  - MUSCLE SPASMS [None]
  - POOR QUALITY SLEEP [None]
